FAERS Safety Report 22161718 (Version 1)
Quarter: 2023Q1

REPORT INFORMATION
  Report Type: Spontaneous
  Country: US (occurrence: US)
  Receive Date: 20230331
  Receipt Date: 20230331
  Transmission Date: 20230417
  Serious: Yes (Death, Hospitalization)
  Sender: FDA-Public Use
  Company Number: US-NOVPHSZ-PHHY2019US207223

PATIENT
  Age: 41 Year
  Sex: Female

DRUGS (3)
  1. FERROUS SULFATE [Suspect]
     Active Substance: FERROUS SULFATE
     Indication: Product used for unknown indication
     Dosage: UNK
     Route: 065
  2. DIPHENHYDRAMINE [Suspect]
     Active Substance: DIPHENHYDRAMINE
     Indication: Product used for unknown indication
     Dosage: UNK
     Route: 065
  3. IBUPROFEN [Suspect]
     Active Substance: IBUPROFEN
     Indication: Product used for unknown indication
     Dosage: UNK
     Route: 065

REACTIONS (16)
  - Toxicity to various agents [Fatal]
  - Shock [Fatal]
  - PCO2 decreased [Fatal]
  - Blood lactic acid increased [Fatal]
  - Tachycardia [Fatal]
  - Hypotension [Fatal]
  - Oxygen saturation decreased [Fatal]
  - Lethargy [Fatal]
  - Blood pH decreased [Fatal]
  - Hepatic failure [Fatal]
  - Haemorrhagic diathesis [Fatal]
  - Disseminated intravascular coagulation [Fatal]
  - Acute respiratory distress syndrome [Fatal]
  - Hypoxia [Fatal]
  - Intentional overdose [Fatal]
  - Suicide attempt [Fatal]
